FAERS Safety Report 6807438-3 (Version None)
Quarter: 2010Q2

REPORT INFORMATION
  Report Type: 
  Country: None (occurrence: None)
  Receive Date: 20100629
  Receipt Date: 20080926
  Transmission Date: 20101027
  Serious: No
  Sender: FDA-Public Use
  Company Number: US-PFIZER INC-2008081626

PATIENT
  Age: 25 Year
  Sex: Female

DRUGS (3)
  1. ZYVOX [Suspect]
  2. VANCOMYCIN [Concomitant]
  3. AZITHROMYCIN [Concomitant]

REACTIONS (1)
  - RASH [None]
